FAERS Safety Report 18839021 (Version 1)
Quarter: 2021Q1

REPORT INFORMATION
  Report Type: Spontaneous
  Country: US (occurrence: US)
  Receive Date: 20210203
  Receipt Date: 20210203
  Transmission Date: 20210419
  Serious: No
  Sender: FDA-Public Use
  Company Number: US-ALLERGAN-2049293US

PATIENT
  Sex: Male

DRUGS (3)
  1. BOTOX COSMETIC [Suspect]
     Active Substance: ONABOTULINUMTOXINA
     Dosage: 78 UNITS
     Dates: start: 20201218, end: 20201218
  2. BOTOX COSMETIC [Suspect]
     Active Substance: ONABOTULINUMTOXINA
     Indication: SKIN WRINKLING
     Dosage: 78 UNK, SINGLE
     Dates: start: 20201120, end: 20201120
  3. BOTOX COSMETIC [Suspect]
     Active Substance: ONABOTULINUMTOXINA
     Dosage: UNK UNK, SINGLE
     Dates: start: 20201120, end: 20201120

REACTIONS (5)
  - Product quality issue [Unknown]
  - Drug ineffective [Unknown]
  - Multiple use of single-use product [Unknown]
  - Poor quality product administered [Unknown]
  - Off label use [Unknown]

NARRATIVE: CASE EVENT DATE: 20201120
